FAERS Safety Report 23302781 (Version 1)
Quarter: 2023Q4

REPORT INFORMATION
  Report Type: Spontaneous
  Country: ZA (occurrence: ZA)
  Receive Date: 20231215
  Receipt Date: 20231215
  Transmission Date: 20240110
  Serious: Yes (Death, Other)
  Sender: FDA-Public Use
  Company Number: ZA-BAYER-2023A180185

PATIENT
  Sex: Male

DRUGS (1)
  1. ULTRAVIST [Suspect]
     Active Substance: IOPROMIDE
     Indication: Angiogram
     Dosage: UNK UNK, ONCE
     Dates: start: 20230922, end: 20230922

REACTIONS (3)
  - Death [Fatal]
  - Cardiac failure [None]
  - Blood creatinine increased [None]

NARRATIVE: CASE EVENT DATE: 20231010
